FAERS Safety Report 16568780 (Version 1)
Quarter: 2019Q3

REPORT INFORMATION
  Report Type: Spontaneous
  Country: FR (occurrence: FR)
  Receive Date: 20190713
  Receipt Date: 20190713
  Transmission Date: 20191004
  Serious: Yes (Other)
  Sender: FDA-Public Use
  Company Number: FR-ROCHE-2353775

PATIENT
  Age: 35 Year
  Sex: Male

DRUGS (8)
  1. ZOPICLONE [Suspect]
     Active Substance: ZOPICLONE
     Indication: ALCOHOLISM
     Route: 048
     Dates: start: 20190529
  2. LAMOTRIGINE. [Suspect]
     Active Substance: LAMOTRIGINE
     Indication: EPILEPSY
     Route: 048
     Dates: start: 2014
  3. LORMETAZEPAM [Suspect]
     Active Substance: LORMETAZEPAM
     Indication: ALCOHOLISM
     Route: 048
     Dates: start: 20190529
  4. CLOBAZAM. [Suspect]
     Active Substance: CLOBAZAM
     Indication: PRODUCT USED FOR UNKNOWN INDICATION
     Route: 048
     Dates: start: 20190529, end: 20190611
  5. ACAMPROSATE CALCIUM. [Suspect]
     Active Substance: ACAMPROSATE CALCIUM
     Indication: ALCOHOLISM
     Route: 048
     Dates: start: 20190529
  6. DIAZEPAM. [Suspect]
     Active Substance: DIAZEPAM
     Indication: ALCOHOLISM
     Route: 048
     Dates: start: 20190529
  7. ZOPICLONE [Suspect]
     Active Substance: ZOPICLONE
     Dosage: DOSE REDUCED
     Route: 048
  8. DIAZEPAM. [Suspect]
     Active Substance: DIAZEPAM
     Dosage: REDUCED DOSE
     Route: 048

REACTIONS (1)
  - Somnolence [Not Recovered/Not Resolved]

NARRATIVE: CASE EVENT DATE: 20190604
